FAERS Safety Report 10717007 (Version 2)
Quarter: 2015Q1

REPORT INFORMATION
  Report Type: Spontaneous
  Country: US (occurrence: US)
  Receive Date: 20150116
  Receipt Date: 20150202
  Transmission Date: 20150721
  Serious: Yes (Other)
  Sender: FDA-Public Use
  Company Number: US-LUNDBECK-DKLU1107592

PATIENT
  Age: 68 Year
  Sex: Female
  Weight: 62 kg

DRUGS (2)
  1. XIFAXAN [Concomitant]
     Active Substance: RIFAXIMIN
     Indication: ENTERITIS INFECTIOUS
  2. NORTHERA [Suspect]
     Active Substance: DROXIDOPA
     Indication: AUTONOMIC NERVOUS SYSTEM IMBALANCE
     Route: 065
     Dates: start: 20141209, end: 20141216

REACTIONS (4)
  - Abdominal pain [Unknown]
  - Polyp [Recovering/Resolving]
  - Nausea [Recovering/Resolving]
  - Impaired gastric emptying [Unknown]

NARRATIVE: CASE EVENT DATE: 20141216
